FAERS Safety Report 20078440 (Version 1)
Quarter: 2021Q4

REPORT INFORMATION
  Report Type: Report from Study
  Country: US (occurrence: US)
  Receive Date: 20211117
  Receipt Date: 20211117
  Transmission Date: 20220303
  Serious: Yes (Hospitalization)
  Sender: FDA-Public Use
  Company Number: US-ABBVIE-21K-163-4159543-00

PATIENT
  Sex: Female

DRUGS (1)
  1. IMBRUVICA [Suspect]
     Active Substance: IBRUTINIB
     Indication: Follicular lymphoma
     Route: 048
     Dates: start: 202102

REACTIONS (8)
  - Loss of consciousness [Unknown]
  - Dehydration [Unknown]
  - Renal impairment [Unknown]
  - Atrial fibrillation [Recovered/Resolved]
  - Urinary tract infection [Unknown]
  - Diarrhoea [Not Recovered/Not Resolved]
  - Blood iron decreased [Unknown]
  - White blood cell count increased [Unknown]

NARRATIVE: CASE EVENT DATE: 20210101
